FAERS Safety Report 6054920-5 (Version None)
Quarter: 2009Q1

REPORT INFORMATION
  Report Type: 
  Country: None (occurrence: None)
  Receive Date: 20090128
  Receipt Date: 20090120
  Transmission Date: 20090719
  Serious: Yes (Hospitalization)
  Sender: FDA-Public Use
  Company Number: PHEH2009US00993

PATIENT
  Sex: Female

DRUGS (2)
  1. ZELNORM [Suspect]
     Indication: ABDOMINAL DISTENSION
     Dosage: UNK
     Dates: start: 20040301
  2. ZELNORM [Suspect]
     Indication: CONSTIPATION

REACTIONS (1)
  - MYOCARDIAL INFARCTION [None]
